FAERS Safety Report 6505547-X (Version None)
Quarter: 2009Q4

REPORT INFORMATION
  Report Type: 
  Country: None (occurrence: None)
  Receive Date: 20091218
  Receipt Date: 20091117
  Transmission Date: 20100525
  Serious: No
  Sender: FDA-Public Use
  Company Number: US-BAYER-200939971NA

PATIENT
  Age: 31 Year
  Sex: Female

DRUGS (2)
  1. MIRENA [Suspect]
     Indication: CONTRACEPTION
     Dosage: CONTINUOUS
     Route: 015
     Dates: start: 20080901
  2. AZITHROMYCIN [Concomitant]
     Indication: RESPIRATORY TRACT INFECTION
     Dosage: UNKNOWN DOSAGE

REACTIONS (2)
  - RESPIRATORY TRACT INFECTION [None]
  - VULVOVAGINAL DRYNESS [None]
